FAERS Safety Report 8045351-7 (Version None)
Quarter: 2012Q1

REPORT INFORMATION
  Report Type: 
  Country: None (occurrence: None)
  Receive Date: 20120111
  Receipt Date: 20120111
  Transmission Date: 20120608
  Serious: Yes (Hospitalization)
  Sender: FDA-Public Use
  Company Number: None

PATIENT
  Sex: Female
  Weight: 63.5 kg

DRUGS (6)
  1. CARFILZOMIB [Suspect]
     Indication: MULTIPLE MYELOMA
     Dosage: 20MG/M2 = 45 MG D 1,2,8,9,15+16 IV OVER 30 MINUTES
     Route: 042
     Dates: start: 20110118
  2. CARFILZOMIB [Suspect]
     Indication: MULTIPLE MYELOMA
     Dosage: 20MG/M2 = 45 MG D 1,2,8,9,15+16 IV OVER 30 MINUTES
     Route: 042
     Dates: start: 20110202
  3. CARFILZOMIB [Suspect]
     Indication: MULTIPLE MYELOMA
     Dosage: 20MG/M2 = 45 MG D 1,2,8,9,15+16 IV OVER 30 MINUTES
     Route: 042
     Dates: start: 20110119
  4. CARFILZOMIB [Suspect]
     Indication: MULTIPLE MYELOMA
     Dosage: 20MG/M2 = 45 MG D 1,2,8,9,15+16 IV OVER 30 MINUTES
     Route: 042
     Dates: start: 20110125
  5. CARFILZOMIB [Suspect]
     Indication: MULTIPLE MYELOMA
     Dosage: 20MG/M2 = 45 MG D 1,2,8,9,15+16 IV OVER 30 MINUTES
     Route: 042
     Dates: start: 20110201
  6. CARFILZOMIB [Suspect]
     Indication: MULTIPLE MYELOMA
     Dosage: 20MG/M2 = 45 MG D 1,2,8,9,15+16 IV OVER 30 MINUTES
     Route: 042
     Dates: start: 20110126

REACTIONS (5)
  - CONDITION AGGRAVATED [None]
  - CARDIOMEGALY [None]
  - CARDIAC FAILURE CONGESTIVE [None]
  - PYREXIA [None]
  - ATELECTASIS [None]
